FAERS Safety Report 24285747 (Version 3)
Quarter: 2025Q2

REPORT INFORMATION
  Report Type: Report from Study
  Country: US (occurrence: US)
  Receive Date: 20240905
  Receipt Date: 20250529
  Transmission Date: 20250717
  Serious: Yes (Hospitalization)
  Sender: TAKEDA
  Company Number: US-TAKEDA-2024TUS086771

PATIENT
  Sex: Male

DRUGS (22)
  1. IXAZOMIB [Suspect]
     Active Substance: IXAZOMIB
     Indication: Plasma cell myeloma
  2. VELCADE [Suspect]
     Active Substance: BORTEZOMIB
     Indication: Plasma cell myeloma
     Dosage: 3.5 MILLIGRAM, 1/WEEK
  3. REVLIMID [Suspect]
     Active Substance: LENALIDOMIDE
     Indication: Plasma cell myeloma
  4. REVLIMID [Suspect]
     Active Substance: LENALIDOMIDE
  5. PROTONIX [Concomitant]
     Active Substance: PANTOPRAZOLE SODIUM
  6. ONDANSETRON [Concomitant]
     Active Substance: ONDANSETRON
  7. ACYCLOVIR [Concomitant]
     Active Substance: ACYCLOVIR
  8. SENNA [Concomitant]
     Active Substance: SENNOSIDES
  9. DICYCLOMINE [Concomitant]
     Active Substance: DICYCLOMINE HYDROCHLORIDE
  10. SYMBICORT [Concomitant]
     Active Substance: BUDESONIDE\FORMOTEROL FUMARATE DIHYDRATE
  11. TYLENOL [Concomitant]
     Active Substance: ACETAMINOPHEN
  12. ATORVASTATIN [Concomitant]
     Active Substance: ATORVASTATIN
  13. ASPIRIN [Concomitant]
     Active Substance: ASPIRIN
  14. LYRICA [Concomitant]
     Active Substance: PREGABALIN
  15. DEXAMETHASONE [Concomitant]
     Active Substance: DEXAMETHASONE
  16. ALBUTEROL [Concomitant]
     Active Substance: ALBUTEROL
  17. METOPROLOL SUCCINATE [Concomitant]
     Active Substance: METOPROLOL SUCCINATE
  18. OXYCONTIN [Concomitant]
     Active Substance: OXYCODONE HYDROCHLORIDE
  19. TIZANIDINE [Concomitant]
     Active Substance: TIZANIDINE
  20. PERCOCET [Concomitant]
     Active Substance: ACETAMINOPHEN\OXYCODONE HYDROCHLORIDE
  21. LIPITOR [Concomitant]
     Active Substance: ATORVASTATIN CALCIUM
  22. STOOL SOFTENER (DOCUSATE) [Concomitant]
     Active Substance: DOCUSATE

REACTIONS (3)
  - Chest pain [Unknown]
  - Dyspnoea [Unknown]
  - Nausea [Unknown]
